FAERS Safety Report 14549326 (Version 2)
Quarter: 2018Q1

REPORT INFORMATION
  Report Type: Report from Study
  Country: IT (occurrence: IT)
  Receive Date: 20180219
  Receipt Date: 20180312
  Transmission Date: 20180509
  Serious: Yes (Hospitalization)
  Sender: FDA-Public Use
  Company Number: IT-ACCORD-063584

PATIENT
  Age: 58 Year
  Sex: Female

DRUGS (2)
  1. CARBOPLATIN. [Suspect]
     Active Substance: CARBOPLATIN
     Indication: OVARIAN CANCER
     Dates: start: 20180105, end: 20180105
  2. PACLITAXEL/PACLITAXEL LIPOSOME [Suspect]
     Active Substance: PACLITAXEL
     Indication: OVARIAN CANCER
     Route: 041
     Dates: start: 20180105, end: 20180105

REACTIONS (6)
  - Chest discomfort [Not Recovered/Not Resolved]
  - Bronchospasm [Not Recovered/Not Resolved]
  - Oxygen saturation decreased [Not Recovered/Not Resolved]
  - Dyspnoea [Not Recovered/Not Resolved]
  - Sense of oppression [Not Recovered/Not Resolved]
  - Cold sweat [Not Recovered/Not Resolved]

NARRATIVE: CASE EVENT DATE: 20180105
